FAERS Safety Report 12322510 (Version 4)
Quarter: 2017Q3

REPORT INFORMATION
  Report Type: Spontaneous
  Country: KR (occurrence: KR)
  Receive Date: 20160502
  Receipt Date: 20170726
  Transmission Date: 20171127
  Serious: Yes (Other)
  Sender: FDA-Public Use
  Company Number: KR-009507513-1605KOR000163

PATIENT
  Age: 72 Year
  Sex: Male
  Weight: 55 kg

DRUGS (20)
  1. DIABEX [Concomitant]
     Active Substance: METFORMIN HYDROCHLORIDE
     Indication: DIABETES MELLITUS
     Dosage: 500 MG, QD
     Route: 048
  2. PETHIDINE HCL JEIL [Concomitant]
     Indication: PREMEDICATION
     Dosage: 25 MG, QD
     Route: 030
     Dates: start: 20151104, end: 20151104
  3. ALGIRON [Concomitant]
     Active Substance: CIMETROPIUM BROMIDE
     Indication: PREMEDICATION
     Dosage: 5 MG, QD
     Route: 030
     Dates: start: 20151104, end: 20151104
  4. EMEND (FOSAPREPITANT DIMEGLUMINE) [Suspect]
     Active Substance: FOSAPREPITANT DIMEGLUMINE
     Indication: PROPHYLAXIS OF NAUSEA AND VOMITING
     Dosage: 150 MG, ONCE
     Route: 042
     Dates: start: 20151103, end: 20151103
  5. CHLORPHENIRAMINE MALEATE. [Concomitant]
     Active Substance: CHLORPHENIRAMINE MALEATE
     Indication: PROPHYLAXIS
     Dosage: 4 MG, QD
     Route: 042
     Dates: start: 20151104, end: 20151104
  6. AMLODIPINE KUKJE [Concomitant]
     Indication: HYPERTENSION
     Dosage: 5 MG, QD
     Route: 048
  7. NIZAXID [Concomitant]
     Indication: PROPHYLAXIS
     Dosage: 150 MG, QD
     Route: 048
     Dates: start: 20151013, end: 20151027
  8. FLUOROURACIL. [Concomitant]
     Active Substance: FLUOROURACIL
     Indication: CHEMOTHERAPY
     Dosage: 62.5 MG, QD; 4 DAYS TOTAL DOSE: 250 MG
     Route: 042
     Dates: start: 20151103, end: 20151106
  9. AMBRECT [Concomitant]
     Indication: SPUTUM RETENTION
     Dosage: 30 MG, BID
     Route: 048
     Dates: start: 20151013, end: 20151027
  10. AMBRECT [Concomitant]
     Indication: PNEUMONIA
     Dosage: 30 MG, BID
     Route: 048
     Dates: start: 20151107, end: 20151116
  11. SIGMART [Concomitant]
     Active Substance: NICORANDIL
     Indication: ANGINA PECTORIS
     Dosage: 5 MG, QD
     Route: 048
     Dates: start: 20151013
  12. FLUOROURACIL. [Concomitant]
     Active Substance: FLUOROURACIL
     Indication: CHEMOTHERAPY
     Dosage: 250 MG, QD; 4DAYS TOTAL DOSE : 1000MG
     Route: 042
     Dates: start: 20151103, end: 20151106
  13. DEXAMETHASONE. [Concomitant]
     Active Substance: DEXAMETHASONE
     Indication: PROPHYLAXIS
     Dosage: 10 MG, QD
     Route: 042
     Dates: start: 20151103, end: 20151104
  14. DEXAMETHASONE. [Concomitant]
     Active Substance: DEXAMETHASONE
     Dosage: 10 MG, QD
     Route: 042
     Dates: start: 20151106, end: 20151106
  15. DIABEX [Concomitant]
     Active Substance: METFORMIN HYDROCHLORIDE
     Dosage: 500 MG, QD
     Route: 048
  16. LIDOCAINE HYDROCHLORIDE. [Concomitant]
     Active Substance: LIDOCAINE HYDROCHLORIDE
     Indication: PREMEDICATION
     Dosage: 15 ML, QD
     Route: 048
     Dates: start: 20151104, end: 20151114
  17. PLATOSIN [Concomitant]
     Active Substance: CISPLATIN
     Indication: CHEMOTHERAPY
     Dosage: 94 MG, ONCE
     Route: 042
     Dates: start: 20151103, end: 20151103
  18. ALOXI [Concomitant]
     Active Substance: PALONOSETRON HYDROCHLORIDE
     Indication: PROPHYLAXIS
     Dosage: 0.25 MG, QD
     Route: 042
     Dates: start: 20151103, end: 20151103
  19. MANNITOL. [Concomitant]
     Active Substance: MANNITOL
     Indication: PROPHYLAXIS
     Dosage: 250 ML, QD
     Route: 042
     Dates: start: 20151103, end: 20151103
  20. GASOCOL [Concomitant]
     Indication: PREMEDICATION
     Dosage: 10 ML, QD
     Route: 048
     Dates: start: 20151104, end: 20151104

REACTIONS (3)
  - Nausea [Recovered/Resolved]
  - Pneumonia [Recovered/Resolved]
  - Hiccups [Recovered/Resolved]

NARRATIVE: CASE EVENT DATE: 20151105
